FAERS Safety Report 10037601 (Version 3)
Quarter: 2014Q2

REPORT INFORMATION
  Report Type: Spontaneous
  Country: US (occurrence: None)
  Receive Date: 20140324
  Receipt Date: 20140606
  Transmission Date: 20141212
  Serious: Yes (Hospitalization)
  Sender: FDA-Public Use
  Company Number: UTC-045951

PATIENT
  Age: 65 Year
  Sex: Male
  Weight: 142.8 kg

DRUGS (4)
  1. REMODULIN [Suspect]
     Indication: PULMONARY ARTERIAL HYPERTENSION
     Dosage: 0.045 UG/KG
     Route: 058
     Dates: start: 20070428
  2. COUMADIN (WARFARIN SODIUM) [Concomitant]
  3. ADCIRCA (TADALAFIL) [Concomitant]
  4. WARFARIN (WARFARIN) UNKNOWN [Concomitant]

REACTIONS (5)
  - Hip fracture [None]
  - Arthralgia [None]
  - Pulmonary arterial hypertension [None]
  - Lymphoedema [None]
  - Osteoporosis [None]
